FAERS Safety Report 11655413 (Version 1)
Quarter: 2015Q4

REPORT INFORMATION
  Report Type: Spontaneous
  Country: TW (occurrence: TW)
  Receive Date: 20151023
  Receipt Date: 20151023
  Transmission Date: 20160304
  Serious: Yes (Hospitalization, Other)
  Sender: FDA-Public Use
  Company Number: TW-GILEAD-2015-0177731

PATIENT
  Age: 62 Year
  Sex: Female
  Weight: 56 kg

DRUGS (6)
  1. RASITOL [Concomitant]
     Indication: OEDEMA
     Dosage: 1 UNKNOWN, UNK
     Route: 065
     Dates: start: 20150919
  2. SENNAPUR [Concomitant]
     Indication: CONSTIPATION
     Dosage: 1 UNKNOWN, UNK
     Route: 065
     Dates: start: 20150927
  3. UNIFRADINE [Concomitant]
     Indication: URINARY TRACT INFECTION
     Dosage: 4 UNKNOWN, UNK
     Route: 065
     Dates: start: 20151005, end: 20151007
  4. HARVONI [Suspect]
     Active Substance: LEDIPASVIR\SOFOSBUVIR
     Indication: HEPATITIS C
     Dosage: 1 DF, Q1WK
     Route: 065
     Dates: start: 20150526
  5. DIPHENIDOL [Concomitant]
     Active Substance: DIPHENIDOL
     Indication: UNEVALUABLE EVENT
     Dosage: 3 UNKNOWN, UNK
     Route: 065
     Dates: start: 20150919
  6. INDERAL [Concomitant]
     Active Substance: PROPRANOLOL HYDROCHLORIDE
     Indication: VARICES OESOPHAGEAL
     Dosage: 20 MG, UNK
     Route: 065
     Dates: start: 20081013

REACTIONS (1)
  - Upper gastrointestinal haemorrhage [Recovered/Resolved]

NARRATIVE: CASE EVENT DATE: 20151007
